FAERS Safety Report 19280565 (Version 2)
Quarter: 2021Q2

REPORT INFORMATION
  Report Type: Report from Study
  Country: None (occurrence: CA)
  Receive Date: 20210521
  Receipt Date: 20210523
  Transmission Date: 20210717
  Serious: Yes (Hospitalization)
  Sender: FDA-Public Use
  Company Number: CA-ABBVIE-21K-028-3912493-00

PATIENT
  Sex: Female

DRUGS (2)
  1. RINVOQ [Suspect]
     Active Substance: UPADACITINIB
     Indication: RHEUMATOID ARTHRITIS
     Route: 048
     Dates: start: 20210101, end: 20210427
  2. RINVOQ [Suspect]
     Active Substance: UPADACITINIB
     Route: 048

REACTIONS (7)
  - Kidney infection [Unknown]
  - Gallbladder disorder [Unknown]
  - Pain [Unknown]
  - Somnolence [Unknown]
  - Pneumonia [Unknown]
  - Bile duct stenosis [Unknown]
  - Cystitis [Unknown]

NARRATIVE: CASE EVENT DATE: 2021
